FAERS Safety Report 6102801-0 (Version None)
Quarter: 2009Q1

REPORT INFORMATION
  Report Type: 
  Country: None (occurrence: None)
  Receive Date: 20090304
  Receipt Date: 20090303
  Transmission Date: 20090719
  Serious: No
  Sender: FDA-Public Use
  Company Number: US-B.I. PHARMACEUTICALS,INC./RIDGEFIELD-2009-BP-02556BP

PATIENT
  Age: 79 Year
  Sex: Female

DRUGS (4)
  1. SPIRIVA [Suspect]
     Indication: PULMONARY FIBROSIS
     Dosage: 18MCG
     Route: 055
     Dates: start: 20080101
  2. THYROID MEDICINE [Concomitant]
     Indication: HYPOTHYROIDISM
  3. NEXIUM [Concomitant]
     Indication: GASTROOESOPHAGEAL REFLUX DISEASE
  4. COUMADIN [Concomitant]
     Indication: ATRIAL FIBRILLATION

REACTIONS (4)
  - ATRIAL FIBRILLATION [None]
  - DYSPHONIA [None]
  - MACULAR DEGENERATION [None]
  - VISION BLURRED [None]
